FAERS Safety Report 8554852-4 (Version None)
Quarter: 2012Q3

REPORT INFORMATION
  Report Type: 
  Country: None (occurrence: None)
  Receive Date: 20120731
  Receipt Date: 20120725
  Transmission Date: 20120928
  Serious: Yes (Disabling, Other)
  Sender: FDA-Public Use
  Company Number: PHHY2012JP041993

PATIENT
  Age: 60 Year
  Sex: Male

DRUGS (1)
  1. NEORAL [Suspect]
     Indication: BEHCET'S SYNDROME
     Dosage: 150 MG DAILY
     Route: 048
     Dates: start: 20080711, end: 20111005

REACTIONS (7)
  - CENTRAL NERVOUS SYSTEM LESION [None]
  - HYPOAESTHESIA [None]
  - MUSCULAR WEAKNESS [None]
  - TOXICITY TO VARIOUS AGENTS [None]
  - HEMIPLEGIA [None]
  - NEUROTOXICITY [None]
  - CSF PROTEIN INCREASED [None]
